FAERS Safety Report 12192063 (Version 1)
Quarter: 2016Q1

REPORT INFORMATION
  Report Type: Report from Study
  Country: US (occurrence: US)
  Receive Date: 20160318
  Receipt Date: 20160318
  Transmission Date: 20160526
  Serious: Yes (Other)
  Sender: FDA-Public Use
  Company Number: US-AMGEN-USASL2016015854

PATIENT
  Age: 62 Year
  Sex: Male
  Weight: 82.99 kg

DRUGS (3)
  1. ASPIRIN                            /00002701/ [Concomitant]
     Active Substance: ASPIRIN
     Dosage: 81 MG, QD
     Route: 048
  2. REPATHA [Suspect]
     Active Substance: EVOLOCUMAB
     Indication: HYPERLIPIDAEMIA
     Dosage: 140 MG, Q2WK
     Route: 058
     Dates: start: 20160205
  3. HYDROCHLOROTHIAZIDE. [Concomitant]
     Active Substance: HYDROCHLOROTHIAZIDE
     Indication: HYPERTENSION
     Dosage: 25 MG, QD
     Route: 048

REACTIONS (13)
  - Nasopharyngitis [Recovered/Resolved]
  - Device use error [Unknown]
  - Vomiting [Unknown]
  - Immunodeficiency [Unknown]
  - Oropharyngeal pain [Recovered/Resolved]
  - Ear pain [Unknown]
  - Pain in jaw [Unknown]
  - Lymphadenopathy [Unknown]
  - Injury associated with device [Unknown]
  - Feeling abnormal [Recovered/Resolved]
  - Influenza like illness [Recovered/Resolved]
  - Insomnia [Unknown]
  - Underdose [Unknown]

NARRATIVE: CASE EVENT DATE: 2016
